FAERS Safety Report 6557684-1 (Version None)
Quarter: 2010Q1

REPORT INFORMATION
  Report Type: 
  Country: None (occurrence: None)
  Receive Date: 20100127
  Receipt Date: 20090828
  Transmission Date: 20100710
  Serious: No
  Sender: FDA-Public Use
  Company Number: 2009-00582

PATIENT
  Age: 47 Year
  Sex: Female

DRUGS (5)
  1. COLD REMEDY ORAL MIST [Suspect]
     Indication: NASOPHARYNGITIS
     Dosage: EVERY 3 HOURS FOR 4 DAYS
     Dates: start: 20090825, end: 20090828
  2. METHOTREXATE [Concomitant]
  3. ADVIL [Concomitant]
  4. ROBITUSSIN COUGH [Concomitant]
  5. SUPPLEMENTS [Concomitant]

REACTIONS (2)
  - AGEUSIA [None]
  - TONGUE COATED [None]
